FAERS Safety Report 9324466 (Version 1)
Quarter: 2013Q2

REPORT INFORMATION
  Report Type: Spontaneous
  Country: US (occurrence: None)
  Receive Date: 20130531
  Receipt Date: 20130531
  Transmission Date: 20140414
  Serious: Yes (Death)
  Sender: FDA-Public Use
  Company Number: None

PATIENT
  Age: 79 Year
  Sex: Female
  Weight: 51.71 kg

DRUGS (1)
  1. STIVARGA [Suspect]
     Indication: COLON CANCER METASTATIC
     Dosage: 1 160 MG DAILY PO
     Route: 048
     Dates: start: 20130201, end: 20130301

REACTIONS (10)
  - Aphonia [None]
  - Asthenia [None]
  - Fatigue [None]
  - Decreased appetite [None]
  - Weight decreased [None]
  - Nausea [None]
  - Vomiting [None]
  - Renal failure acute [None]
  - Hepatic neoplasm [None]
  - Condition aggravated [None]
